FAERS Safety Report 5408247-2 (Version None)
Quarter: 2007Q3

REPORT INFORMATION
  Report Type: 
  Country: None (occurrence: None)
  Receive Date: 20070806
  Receipt Date: 20070806
  Transmission Date: 20080115
  Serious: Yes (Hospitalization)
  Sender: FDA-Public Use
  Company Number: None

PATIENT
  Age: 73 Year
  Sex: Male

DRUGS (3)
  1. LISINOPRIL [Suspect]
     Indication: CARDIAC FAILURE CONGESTIVE
     Dosage: 10MG EVERY DAY PO
     Route: 048
     Dates: start: 20070411, end: 20070627
  2. LISINOPRIL [Suspect]
     Indication: CORONARY ARTERY DISEASE
     Dosage: 10MG EVERY DAY PO
     Route: 048
     Dates: start: 20070411, end: 20070627
  3. METOPROLOL SUCCINATE [Suspect]
     Dosage: 50MG EVERY DAY PO
     Route: 048

REACTIONS (4)
  - DIZZINESS [None]
  - DYSPNOEA [None]
  - HYPOTENSION [None]
  - SYNCOPE [None]
